FAERS Safety Report 9516630 (Version 1)
Quarter: 2013Q1

REPORT INFORMATION
  Report Type: Spontaneous
  Country: US (occurrence: None)
  Receive Date: 20130305
  Receipt Date: 20130305
  Transmission Date: 20140127
  Serious: Yes (Other)
  Sender: FDA-Public Use
  Company Number: 163-21880-12120363

PATIENT
  Age: 92 Year
  Sex: Female

DRUGS (10)
  1. REVLIMID [Suspect]
     Indication: MYELODYSPLASTIC SYNDROME
     Route: 048
     Dates: start: 20120225
  2. ASPIRIN(ACETYLSALICYLIC ACID)(TABLETS) [Concomitant]
  3. CALCIUM CITRATE(CALCIUM CITRATE)(UNKNOWN) [Concomitant]
  4. CENTRUM SILVER(CENTRUM SILVER)(TABLETS) [Concomitant]
  5. LASIX(FUROSEMIDE)(TABLETS) [Concomitant]
  6. NEXIUM(ESOMEPRAZOLE)(CAPSULES) [Concomitant]
  7. OSTEO BI-FLEX(OSTEO BI-FLEX)(UNKNOWN) [Concomitant]
  8. POTASSIUM(POTASSIUM)(TABLETS) [Concomitant]
  9. PROCRIT [Suspect]
  10. CELEBREX (CELECOXIB) (CAPSULES) [Concomitant]

REACTIONS (1)
  - Anaemia [None]
